FAERS Safety Report 12752430 (Version 3)
Quarter: 2016Q4

REPORT INFORMATION
  Report Type: Spontaneous
  Country: US (occurrence: US)
  Receive Date: 20160916
  Receipt Date: 20161013
  Transmission Date: 20170207
  Serious: No
  Sender: FDA-Public Use
  Company Number: US-009507513-1609USA006464

PATIENT

DRUGS (1)
  1. CUBICIN [Suspect]
     Active Substance: DAPTOMYCIN
     Dosage: 500 MG, ONCE; IV PIGGY BACK
     Route: 042

REACTIONS (2)
  - Product preparation error [Unknown]
  - No adverse event [Unknown]
